FAERS Safety Report 7252873-5 (Version None)
Quarter: 2011Q1

REPORT INFORMATION
  Report Type: 
  Country: None (occurrence: None)
  Receive Date: 20110129
  Receipt Date: 20100326
  Transmission Date: 20110831
  Serious: No
  Sender: FDA-Public Use
  Company Number: US-ABBOTT-10P-163-0635139-00

PATIENT
  Sex: Female
  Weight: 90.8 kg

DRUGS (7)
  1. HUMIRA [Suspect]
     Indication: PSORIASIS
     Dates: start: 20080101, end: 20100101
  2. ATIVAN [Concomitant]
     Indication: STRESS
  3. ATIVAN [Concomitant]
     Indication: ANXIETY
  4. HUMIRA [Suspect]
     Dates: start: 20100101
  5. DIOVAN [Concomitant]
     Indication: HYPERTENSION
  6. PREMARIN [Concomitant]
     Indication: HORMONE REPLACEMENT THERAPY
  7. FIORICET [Concomitant]
     Indication: MIGRAINE

REACTIONS (3)
  - DRUG INEFFECTIVE [None]
  - ARTHRITIS [None]
  - PSORIASIS [None]
